FAERS Safety Report 15599807 (Version 2)
Quarter: 2018Q4

REPORT INFORMATION
  Report Type: Spontaneous
  Country: US (occurrence: US)
  Receive Date: 20181108
  Receipt Date: 20181227
  Transmission Date: 20190205
  Serious: Yes (Hospitalization, Other)
  Sender: FDA-Public Use
  Company Number: US-BIOMARINAP-US-2018-120683

PATIENT
  Age: 1 Year
  Sex: Male

DRUGS (1)
  1. ALDURAZYME [Suspect]
     Active Substance: LARONIDASE
     Indication: MUCOPOLYSACCHARIDOSIS I
     Dosage: UNK
     Route: 041
     Dates: start: 20180911

REACTIONS (9)
  - Heart rate increased [Unknown]
  - Sepsis [Unknown]
  - Feeding disorder [Recovering/Resolving]
  - Oxygen saturation decreased [Unknown]
  - Blood pressure increased [Unknown]
  - Vomiting [Recovering/Resolving]
  - Bone marrow transplant [Recovering/Resolving]
  - Urinary tract infection [Unknown]
  - Respiratory rate increased [Unknown]

NARRATIVE: CASE EVENT DATE: 20181023
